FAERS Safety Report 23282297 (Version 1)
Quarter: 2023Q4

REPORT INFORMATION
  Report Type: Spontaneous
  Country: US (occurrence: None)
  Receive Date: 20231208
  Receipt Date: 20231208
  Transmission Date: 20240110
  Serious: No
  Sender: FDA-Public Use
  Company Number: None

PATIENT
  Age: 52 Year
  Sex: Female

DRUGS (2)
  1. HUMIRA [Suspect]
     Active Substance: ADALIMUMAB
     Indication: Hidradenitis
     Dosage: FREQUENCY : EVERY SECOND;?
     Route: 058
     Dates: start: 202309
  2. TOPAMAX [Suspect]
     Active Substance: TOPIRAMATE
     Indication: Hidradenitis

REACTIONS (2)
  - Hiatus hernia [None]
  - Chest pain [None]
